FAERS Safety Report 8493037-7 (Version None)
Quarter: 2012Q2

REPORT INFORMATION
  Report Type: 
  Country: None (occurrence: None)
  Receive Date: 20120629
  Receipt Date: 20120629
  Transmission Date: 20120825
  Serious: Yes (Hospitalization)
  Sender: FDA-Public Use
  Company Number: None

PATIENT
  Age: 66 Year
  Sex: Male
  Weight: 104.5 kg

DRUGS (1)
  1. IBUPROFEN [Suspect]
     Indication: PAIN
     Dosage: 600 MG QID PO
     Route: 048
     Dates: start: 20120402, end: 20120413

REACTIONS (9)
  - INADEQUATE ANALGESIA [None]
  - ROAD TRAFFIC ACCIDENT [None]
  - JOINT DISLOCATION [None]
  - PNEUMOTHORAX [None]
  - MELAENA [None]
  - SCAPULA FRACTURE [None]
  - GASTRIC HAEMORRHAGE [None]
  - HAEMOTHORAX [None]
  - ANAEMIA [None]
